FAERS Safety Report 21788794 (Version 5)
Quarter: 2023Q1

REPORT INFORMATION
  Report Type: Spontaneous
  Country: US (occurrence: US)
  Receive Date: 20221228
  Receipt Date: 20230127
  Transmission Date: 20230418
  Serious: No
  Sender: FDA-Public Use
  Company Number: US-PFIZER INC-PV202200108453

PATIENT
  Age: 76 Year
  Sex: Male
  Weight: 65.77 kg

DRUGS (14)
  1. BRAFTOVI [Suspect]
     Active Substance: ENCORAFENIB
     Indication: Colon cancer stage IV
     Dosage: 300 MG, DAILY (75 MG 4X A DAY)
  2. BRAFTOVI [Suspect]
     Active Substance: ENCORAFENIB
     Indication: Bone cancer
     Dosage: 150 MG, 2X/DAY (75MG CAPSULES. TAKES 4 A DAY 2 IN THE MORNING AND 2 IN THE EVENING)
     Dates: start: 20221128
  3. BRAFTOVI [Suspect]
     Active Substance: ENCORAFENIB
     Indication: Pulmonary mass
  4. BRAFTOVI [Suspect]
     Active Substance: ENCORAFENIB
     Indication: Neoplasm malignant
  5. HYDROMORPHONE HYDROCHLORIDE [Suspect]
     Active Substance: HYDROMORPHONE HYDROCHLORIDE
     Indication: Pain
     Dosage: 4 MG EVERY 2-3 HOURS AS NEEDED
  6. HYDROMORPHONE HYDROCHLORIDE [Suspect]
     Active Substance: HYDROMORPHONE HYDROCHLORIDE
     Indication: Emotional disorder of childhood
  7. MORPHINE SULFATE [Suspect]
     Active Substance: MORPHINE SULFATE
     Dosage: 120 MG, 2X/DAY (TAKING 4 A DAY. 2 IN THE MORNING AND 2 IN THE EVENING)
  8. CLOPIDOGREL [Concomitant]
     Active Substance: CLOPIDOGREL BISULFATE
     Indication: Arterial disorder
     Dosage: 75 MG, 1X/DAY
     Route: 048
  9. TAMSULOSIN [Concomitant]
     Active Substance: TAMSULOSIN
     Indication: Micturition disorder
     Dosage: UNK, DAILY
  10. METOPROLOL [Concomitant]
     Active Substance: METOPROLOL
     Dosage: 50 MG, 1X/DAY
  11. PROCHLORPERAZINE MALEATE [Concomitant]
     Active Substance: PROCHLORPERAZINE MALEATE
     Indication: Vomiting
     Dosage: 10 MG, AS NEEDED
  12. AMITRIPTYLINE [Concomitant]
     Active Substance: AMITRIPTYLINE
     Dosage: TIMES ONE
  13. BUPROPION HYDROCHLORIDE [Concomitant]
     Active Substance: BUPROPION HYDROCHLORIDE
     Indication: Neoplasm malignant
     Dosage: 200 MG, 2X/DAY
  14. BUPROPION HYDROCHLORIDE [Concomitant]
     Active Substance: BUPROPION HYDROCHLORIDE
     Indication: Mental disorder

REACTIONS (6)
  - Hyperhidrosis [Unknown]
  - Skin exfoliation [Unknown]
  - Contusion [Unknown]
  - Weight decreased [Unknown]
  - Rash pruritic [Unknown]
  - Off label use [Unknown]

NARRATIVE: CASE EVENT DATE: 20220101
